FAERS Safety Report 10440819 (Version 1)
Quarter: 2014Q3

REPORT INFORMATION
  Report Type: Spontaneous
  Country: US (occurrence: None)
  Receive Date: 20140908
  Receipt Date: 20140908
  Transmission Date: 20150326
  Serious: Yes (Hospitalization)
  Sender: FDA-Public Use
  Company Number: None

PATIENT
  Age: 79 Year
  Sex: Male
  Weight: 84.1 kg

DRUGS (2)
  1. IODIXANOL [Suspect]
     Active Substance: IODIXANOL
     Indication: THERAPEUTIC PROCEDURE
     Route: 042
     Dates: start: 20140423, end: 20140423
  2. IODIXANOL [Suspect]
     Active Substance: IODIXANOL
     Indication: CARDIOVASCULAR DISORDER
     Route: 042
     Dates: start: 20140423, end: 20140423

REACTIONS (2)
  - Renal failure acute [None]
  - Nephropathy toxic [None]

NARRATIVE: CASE EVENT DATE: 20140710
